FAERS Safety Report 6057963-0 (Version None)
Quarter: 2009Q1

REPORT INFORMATION
  Report Type: 
  Country: None (occurrence: None)
  Receive Date: 20090129
  Receipt Date: 20090127
  Transmission Date: 20090719
  Serious: Yes (Hospitalization)
  Sender: FDA-Public Use
  Company Number: DE-B.I. PHARMACEUTICALS,INC./RIDGEFIELD-2009-DE-00924DE

PATIENT
  Age: 70 Year
  Sex: Female

DRUGS (2)
  1. MICARDIS [Suspect]
     Dosage: UNKNOWN AMOUNT
  2. VIVINOX [Suspect]
     Dosage: UNKNOWN AMOUNT

REACTIONS (8)
  - BRADYCARDIA [None]
  - CARDIOVASCULAR INSUFFICIENCY [None]
  - CONVULSION [None]
  - DRUG ABUSE [None]
  - NYSTAGMUS [None]
  - SOPOR [None]
  - SUICIDE ATTEMPT [None]
  - VOMITING [None]
